FAERS Safety Report 4922815-3 (Version None)
Quarter: 2006Q1

REPORT INFORMATION
  Report Type: 
  Country: None (occurrence: None)
  Receive Date: 20060224
  Receipt Date: 20051003
  Transmission Date: 20060701
  Serious: Yes (Hospitalization)
  Sender: FDA-Public Use
  Company Number: US-MERCK-0510USA02585

PATIENT
  Age: 66 Year
  Sex: Female
  Weight: 66 kg

DRUGS (3)
  1. VIOXX [Suspect]
     Indication: ARTHRITIS
     Route: 048
     Dates: start: 20000802, end: 20040906
  2. VIOXX [Suspect]
     Route: 048
     Dates: start: 20000802, end: 20040906
  3. VIOXX [Suspect]
     Route: 048
     Dates: start: 20000802, end: 20040906

REACTIONS (5)
  - CEREBROVASCULAR ACCIDENT [None]
  - IRON DEFICIENCY ANAEMIA [None]
  - MUSCULOSKELETAL CHEST PAIN [None]
  - OSTEOARTHRITIS [None]
  - WRONG TECHNIQUE IN DRUG USAGE PROCESS [None]
